FAERS Safety Report 12410296 (Version 5)
Quarter: 2021Q1

REPORT INFORMATION
  Report Type: Spontaneous
  Country: DK (occurrence: DK)
  Receive Date: 20160527
  Receipt Date: 20210130
  Transmission Date: 20210419
  Serious: Yes (Hospitalization, Other)
  Sender: FDA-Public Use
  Company Number: DK-ACCORD-040991

PATIENT
  Age: 60 Year
  Sex: Female
  Weight: 66 kg

DRUGS (8)
  1. PINEX [Concomitant]
     Dosage: IN THE MORNING
  2. METHOTREXATE. [Suspect]
     Active Substance: METHOTREXATE
     Indication: PSORIATIC ARTHROPATHY
     Dosage: TREATMENT WAS CONTINUED
     Route: 058
     Dates: start: 20121026
  3. SIMPONI [Suspect]
     Active Substance: GOLIMUMAB
     Indication: PSORIATIC ARTHROPATHY
     Route: 058
     Dates: start: 20111104, end: 20150216
  4. PREDNISOLONE. [Concomitant]
     Active Substance: PREDNISOLONE
     Indication: PSORIATIC ARTHROPATHY
     Route: 048
     Dates: start: 20110819
  5. ELTROXIN [Concomitant]
     Active Substance: LEVOTHYROXINE
     Indication: MYXOEDEMA
     Dosage: RECEIVED 1 TABLET 150 MICROGRAMS ONCE A DAY FOR 6 DAYS IN A WEEK
  6. FOLINSYRE [Concomitant]
  7. METHOTREXATE. [Suspect]
     Active Substance: METHOTREXATE
     Indication: PSORIATIC ARTHROPATHY
     Dates: start: 2007
  8. OXYNORM [Concomitant]
     Active Substance: OXYCODONE HYDROCHLORIDE
     Dosage: IN THE MORNING

REACTIONS (2)
  - Lung adenocarcinoma [Recovered/Resolved]
  - Pancreatitis [Unknown]

NARRATIVE: CASE EVENT DATE: 2014
